FAERS Safety Report 22286496 (Version 4)
Quarter: 2023Q2

REPORT INFORMATION
  Report Type: Spontaneous
  Country: US (occurrence: US)
  Receive Date: 20230505
  Receipt Date: 20230626
  Transmission Date: 20230721
  Serious: Yes (Hospitalization, Other)
  Sender: FDA-Public Use
  Company Number: US-ABBVIE-4753478

PATIENT
  Sex: Male

DRUGS (2)
  1. MAVYRET [Suspect]
     Active Substance: GLECAPREVIR\PIBRENTASVIR
     Indication: Product used for unknown indication
     Dosage: UNKNOWN
     Route: 048
  2. MAVYRET [Suspect]
     Active Substance: GLECAPREVIR\PIBRENTASVIR
     Indication: Product used for unknown indication
     Route: 048

REACTIONS (15)
  - Hepatic cancer [Unknown]
  - Oesophageal disorder [Unknown]
  - Dysphonia [Unknown]
  - Malaise [Unknown]
  - Illness [Unknown]
  - Visual impairment [Unknown]
  - Bedridden [Unknown]
  - Emotional disorder [Unknown]
  - Scar [Unknown]
  - Alopecia [Unknown]
  - Adverse drug reaction [Unknown]
  - Skin ulcer [Unknown]
  - Auditory disorder [Unknown]
  - Skin injury [Unknown]
  - Stress [Unknown]
